FAERS Safety Report 4848486-2 (Version None)
Quarter: 2005Q4

REPORT INFORMATION
  Report Type: 
  Country: None (occurrence: None)
  Receive Date: 20051208
  Receipt Date: 20050919
  Transmission Date: 20060501
  Serious: Yes (Disabling)
  Sender: FDA-Public Use
  Company Number: PHNR2005AU01424

PATIENT
  Age: 69 Year
  Sex: Female

DRUGS (1)
  1. ZOMETA [Suspect]
     Indication: MULTIPLE MYELOMA
     Dosage: 4 MG, QMO
     Dates: start: 20040121, end: 20041011

REACTIONS (4)
  - ORAL SOFT TISSUE DISORDER [None]
  - OSTEONECROSIS [None]
  - PAIN IN JAW [None]
  - TOOTH EXTRACTION [None]
